FAERS Safety Report 9333401 (Version 2)
Quarter: 2013Q2

REPORT INFORMATION
  Report Type: Spontaneous
  Country: FR (occurrence: FR)
  Receive Date: 20130606
  Receipt Date: 20130618
  Transmission Date: 20140414
  Serious: Yes (Hospitalization)
  Sender: FDA-Public Use
  Company Number: FR-TEVA-408799ISR

PATIENT
  Age: 62 Year
  Sex: Female

DRUGS (5)
  1. AMIODARONE [Suspect]
     Indication: ARRHYTHMIA SUPRAVENTRICULAR
     Dosage: 200MG 5 DAYS/WEEK. STARTED SEVERAL YEARS BEFORE ADMISSION
     Dates: end: 2009
  2. BUDESONIDE [Interacting]
     Indication: ASTHMA
     Route: 055
  3. ITRACONAZOLE [Interacting]
     Indication: BRONCHOPULMONARY ASPERGILLOSIS ALLERGIC
     Dosage: 200 MILLIGRAM DAILY;
  4. PREDNISOLONE [Interacting]
     Indication: RESPIRATORY FAILURE
     Dosage: 20 MILLIGRAM DAILY; RECEIVED SHORT COURSES; CONTINUED AT SAME DOSAGE AFTER ADMISSION
     Route: 048
  5. INSULIN [Concomitant]
     Indication: DIABETES MELLITUS
     Dates: start: 2007

REACTIONS (4)
  - Hyperthyroidism [Unknown]
  - Cushingoid [Unknown]
  - Non-alcoholic steatohepatitis [Unknown]
  - Potentiating drug interaction [Unknown]
